FAERS Safety Report 17635668 (Version 2)
Quarter: 2020Q3

REPORT INFORMATION
  Report Type: Spontaneous
  Country: PT (occurrence: PT)
  Receive Date: 20200406
  Receipt Date: 20200803
  Transmission Date: 20201102
  Serious: Yes (Hospitalization, Other)
  Sender: FDA-Public Use
  Company Number: PT-DSJP-DSE-2020-110502

PATIENT

DRUGS (1)
  1. OLMESARTAN MEDOXOMIL HYDROCHLOROTHIAZIDE [Suspect]
     Active Substance: HYDROCHLOROTHIAZIDE\OLMESARTAN MEDOXOMIL
     Indication: HYPERTENSION
     Dosage: UNK MG

REACTIONS (13)
  - Hypomagnesaemia [Recovered/Resolved]
  - Hypocalcaemia [Recovered/Resolved]
  - Blood creatinine increased [Recovered/Resolved]
  - Hypophosphataemia [Recovered/Resolved]
  - Gastrointestinal disorder [Recovered/Resolved]
  - Anaemia macrocytic [Recovered/Resolved]
  - Hypokalaemia [Recovered/Resolved]
  - Diarrhoea [Recovered/Resolved]
  - Renal injury [Recovered/Resolved]
  - Metabolic acidosis [Recovered/Resolved]
  - Hypoalbuminaemia [Recovered/Resolved]
  - Weight decreased [Recovered/Resolved]
  - Blood urea increased [Recovered/Resolved]
